FAERS Safety Report 9129645 (Version 2)
Quarter: 2013Q1

REPORT INFORMATION
  Report Type: Report from Study
  Country: AU (occurrence: AU)
  Receive Date: 20130228
  Receipt Date: 20130320
  Transmission Date: 20140127
  Serious: Yes (Hospitalization, Other)
  Sender: FDA-Public Use
  Company Number: AU-PFIZER INC-2012273491

PATIENT
  Age: 77 Year
  Sex: Male
  Weight: 89 kg

DRUGS (12)
  1. TOFACITINIB CITRATE [Suspect]
     Indication: RHEUMATOID ARTHRITIS
     Dosage: 10 MG, 2X/DAY
     Route: 048
     Dates: start: 20110214, end: 20120908
  2. PREDNISONE [Suspect]
     Indication: RHEUMATOID ARTHRITIS
     Dosage: 5 MG, 1X/DAY
     Route: 048
     Dates: start: 20091114, end: 20120908
  3. METHOTREXATE [Concomitant]
     Indication: RHEUMATOID ARTHRITIS
     Dosage: 20 MG, WEEKLY
     Route: 048
     Dates: start: 20090917, end: 20120908
  4. FOLIC ACID [Concomitant]
     Indication: PROPHYLAXIS
     Dosage: 0.5 MG, 2X/DAY
     Route: 048
     Dates: start: 200908, end: 20120908
  5. ACETAMINOPHEN [Concomitant]
     Indication: RHEUMATOID ARTHRITIS
     Dosage: 1 G, AS NEEDED
     Route: 048
     Dates: start: 200906
  6. CELECOXIB [Concomitant]
     Indication: RHEUMATOID ARTHRITIS
     Dosage: 200 MG, 1X/DAY
     Route: 048
     Dates: start: 2004, end: 20120908
  7. OMEPRAZOLE MAGNESIUM [Concomitant]
     Indication: GASTROOESOPHAGEAL REFLUX DISEASE
     Dosage: 20 MG, 1X/DAY
     Route: 048
     Dates: start: 2004
  8. ALENDRONATE SODIUM [Concomitant]
     Indication: OSTEOPOROSIS
     Dosage: 70 MG, WEEKLY
     Route: 048
     Dates: start: 20100519
  9. FISH OIL [Concomitant]
     Indication: VITAMIN SUPPLEMENTATION
     Dosage: 12000 MG, 1X/DAY
     Route: 048
     Dates: start: 200909, end: 20120908
  10. FISH OIL [Concomitant]
     Indication: RHEUMATOID ARTHRITIS
  11. GLUCOSAMINE [Concomitant]
     Indication: VITAMIN SUPPLEMENTATION
     Dosage: 1500 MG, 1X/DAY
     Route: 048
     Dates: start: 2008
  12. ASPIRIN [Concomitant]
     Indication: THROMBOSIS PROPHYLAXIS
     Dosage: 100 MG, 1X/DAY
     Route: 048
     Dates: start: 20110629

REACTIONS (3)
  - Serratia infection [Recovered/Resolved]
  - Wound infection [Recovered/Resolved]
  - Renal failure acute [Recovered/Resolved]
